FAERS Safety Report 10058363 (Version 1)
Quarter: 2014Q2

REPORT INFORMATION
  Report Type: Spontaneous
  Country: US (occurrence: None)
  Receive Date: 20140403
  Receipt Date: 20140403
  Transmission Date: 20141212
  Serious: Yes (Other)
  Sender: FDA-Public Use
  Company Number: None

PATIENT
  Sex: Female
  Weight: 55.34 kg

DRUGS (1)
  1. TRAZADONE [Suspect]
     Indication: DEPRESSION
     Dosage: 1 PER NIGHT
     Dates: start: 2002, end: 2014

REACTIONS (4)
  - Syncope [None]
  - Dry mouth [None]
  - Blindness [None]
  - Concussion [None]
